FAERS Safety Report 7357551-X (Version None)
Quarter: 2011Q1

REPORT INFORMATION
  Report Type: 
  Country: None (occurrence: None)
  Receive Date: 20110317
  Receipt Date: 20110314
  Transmission Date: 20110831
  Serious: Yes (Disabling, Other)
  Sender: FDA-Public Use
  Company Number: US-ELI_LILLY_AND_COMPANY-US201101003611

PATIENT
  Sex: Female

DRUGS (6)
  1. HUMULIN N [Suspect]
     Indication: DIABETES MELLITUS
     Dates: end: 20020101
  2. HUMALOG [Suspect]
     Indication: DIABETES MELLITUS
     Dosage: UNK, UNK
     Route: 058
     Dates: start: 20020101
  3. HUMALOG [Suspect]
     Dates: end: 20010101
  4. LANTUS [Concomitant]
     Dosage: 15 U, EACH EVENING
     Dates: start: 20010101, end: 20020101
  5. HUMALOG [Suspect]
     Dosage: UNK, UNK
     Route: 058
     Dates: start: 20020101
  6. HUMALOG [Suspect]
     Dosage: 6 U, 3/D
     Dates: start: 20010101, end: 20020101

REACTIONS (3)
  - VISUAL IMPAIRMENT [None]
  - MACULAR DEGENERATION [None]
  - DIABETIC RETINOPATHY [None]
